FAERS Safety Report 16919214 (Version 1)
Quarter: 2019Q4

REPORT INFORMATION
  Report Type: Spontaneous
  Country: US (occurrence: US)
  Receive Date: 20191014
  Receipt Date: 20191014
  Transmission Date: 20200122
  Serious: Yes (Hospitalization)
  Sender: FDA-Public Use
  Company Number: None

PATIENT
  Age: 41 Year
  Sex: Female

DRUGS (6)
  1. EXEMESTANE TAB 25 MG [Concomitant]
  2. TRAMADOL HCL TAB 50 MG [Concomitant]
  3. IBRANCE [Suspect]
     Active Substance: PALBOCICLIB
     Indication: BREAST CANCER
     Route: 048
     Dates: start: 20181216, end: 20190801
  4. ONDANSETRON TAB 8 MG ODT [Concomitant]
  5. MORPHINE SUL TAB 15 MG [Concomitant]
  6. POT CHLORIDE TAB 20 MEQ ER [Concomitant]

REACTIONS (2)
  - Therapy change [None]
  - Hepatic cancer [None]

NARRATIVE: CASE EVENT DATE: 20190801
